FAERS Safety Report 5072354-7 (Version None)
Quarter: 2006Q3

REPORT INFORMATION
  Report Type: 
  Country: None (occurrence: None)
  Receive Date: 20060807
  Receipt Date: 20060719
  Transmission Date: 20061208
  Serious: Yes (Other)
  Sender: FDA-Public Use
  Company Number: AR-AVENTIS-200617696GDDC

PATIENT
  Age: 33 Year
  Sex: Male

DRUGS (4)
  1. LANTUS [Suspect]
     Indication: DIABETES MELLITUS
     Dosage: DOSE: 22U
     Route: 058
     Dates: start: 20040101, end: 20060101
  2. LANTUS [Suspect]
     Dosage: DOSE: 22U
     Route: 058
     Dates: start: 20060101, end: 20060101
  3. LANTUS [Suspect]
     Dosage: DOSE: 25U
     Route: 058
     Dates: start: 20060101
  4. HUMALOG [Suspect]

REACTIONS (6)
  - BLINDNESS TRANSIENT [None]
  - HEADACHE [None]
  - HYPERGLYCAEMIA [None]
  - MUSCLE SPASMS [None]
  - NAUSEA [None]
  - VISION BLURRED [None]
